FAERS Safety Report 19673913 (Version 1)
Quarter: 2021Q3

REPORT INFORMATION
  Report Type: Spontaneous
  Country: US (occurrence: US)
  Receive Date: 20210806
  Receipt Date: 20210806
  Transmission Date: 20211014
  Serious: No
  Sender: FDA-Public Use
  Company Number: None

PATIENT
  Age: 68 Year
  Sex: Female

DRUGS (2)
  1. ALARIS PUMP AND BRAIN [DEVICE] [Suspect]
     Active Substance: DEVICE
  2. FENTANYL. [Suspect]
     Active Substance: FENTANYL

REACTIONS (5)
  - Incorrect drug administration rate [None]
  - Wrong technique in product usage process [None]
  - Hypotension [None]
  - Incorrect dose administered [None]
  - Device programming error [None]

NARRATIVE: CASE EVENT DATE: 20210722
